FAERS Safety Report 8185754-3 (Version None)
Quarter: 2012Q1

REPORT INFORMATION
  Report Type: 
  Country: None (occurrence: None)
  Receive Date: 20120305
  Receipt Date: 20120228
  Transmission Date: 20120608
  Serious: Yes (Other)
  Sender: FDA-Public Use
  Company Number: US-AMGEN-USASP2010006671

PATIENT
  Age: 75 Year
  Sex: Female
  Weight: 66.667 kg

DRUGS (10)
  1. PROLIA [Suspect]
     Indication: OSTEOPOROSIS POSTMENOPAUSAL
     Dosage: 60 MG, Q6MO
     Route: 058
     Dates: start: 20101116
  2. VYTORIN [Concomitant]
     Dosage: UNK UNK, QD
  3. CYCLOBENZAPRINE [Concomitant]
  4. TYLENOL (CAPLET) [Concomitant]
  5. DILANTIN [Concomitant]
     Dosage: 500 MG, QD
  6. HYDROCHLOROTHIAZIDE [Concomitant]
     Dosage: 1 UNK, QD
  7. GEMFIBROZIL [Concomitant]
  8. LISINOPRIL [Concomitant]
     Dosage: UNK
  9. OMEPRAZOLE [Concomitant]
     Dosage: 20 MG, QD
  10. LEVOTHYROXINE SODIUM [Concomitant]
     Dosage: 88 MG, QD

REACTIONS (5)
  - PAIN IN JAW [None]
  - NECK PAIN [None]
  - FEELING ABNORMAL [None]
  - APHAGIA [None]
  - TOOTH DISORDER [None]
